FAERS Safety Report 25252634 (Version 1)
Quarter: 2025Q2

REPORT INFORMATION
  Report Type: Spontaneous
  Country: US (occurrence: US)
  Receive Date: 20250429
  Receipt Date: 20250429
  Transmission Date: 20250716
  Serious: No
  Sender: VERITY PHARMACEUTICALS INC.
  Company Number: US-VER-202500046

PATIENT
  Age: 10 Year
  Sex: Female

DRUGS (2)
  1. TRELSTAR [Suspect]
     Active Substance: TRIPTORELIN PAMOATE
     Indication: Precocious puberty
     Route: 065
     Dates: start: 20231205
  2. CONCERTA [Concomitant]
     Active Substance: METHYLPHENIDATE HYDROCHLORIDE
     Route: 065

REACTIONS (1)
  - Product substitution error [Recovered/Resolved]

NARRATIVE: CASE EVENT DATE: 20231205
